FAERS Safety Report 10078767 (Version 1)
Quarter: 2014Q2

REPORT INFORMATION
  Report Type: Spontaneous
  Country: US (occurrence: US)
  Receive Date: 20140415
  Receipt Date: 20140415
  Transmission Date: 20141212
  Serious: Yes (Hospitalization)
  Sender: FDA-Public Use
  Company Number: US-PFIZER INC-2014101269

PATIENT
  Age: 70 Year
  Sex: Female

DRUGS (4)
  1. XALKORI [Suspect]
     Dosage: 250 MG, UNK
     Dates: start: 20140303
  2. PHENYTOIN SODIUM EXTENDED [Concomitant]
     Dosage: UNK
  3. PANTOPRAZOLE SODIUM [Concomitant]
     Dosage: UNK
  4. METOPROLOL SUCCINATE ER [Concomitant]
     Dosage: UNK

REACTIONS (1)
  - Thrombosis [Unknown]
